FAERS Safety Report 8440225-1 (Version None)
Quarter: 2012Q2

REPORT INFORMATION
  Report Type: 
  Country: None (occurrence: None)
  Receive Date: 20120615
  Receipt Date: 20120607
  Transmission Date: 20120825
  Serious: Yes (Death, Life-Threatening, Hospitalization)
  Sender: FDA-Public Use
  Company Number: BE-ROCHE-1077397

PATIENT
  Sex: Male
  Weight: 71 kg

DRUGS (4)
  1. AVASTIN [Suspect]
     Indication: METASTATIC RENAL CELL CARCINOMA
     Route: 042
     Dates: start: 20090811
  2. AVASTIN [Suspect]
     Route: 042
     Dates: start: 20091007, end: 20091019
  3. EVEROLIMUS [Suspect]
     Indication: METASTATIC RENAL CELL CARCINOMA
     Route: 048
     Dates: start: 20090811
  4. EVEROLIMUS [Suspect]
     Route: 048
     Dates: start: 20091007, end: 20091018

REACTIONS (5)
  - NAUSEA [None]
  - DECREASED APPETITE [None]
  - OBSTRUCTIVE AIRWAYS DISORDER [None]
  - PERFORMANCE STATUS DECREASED [None]
  - VOMITING [None]
